FAERS Safety Report 6679542-4 (Version None)
Quarter: 2010Q2

REPORT INFORMATION
  Report Type: 
  Country: None (occurrence: None)
  Receive Date: 20100413
  Receipt Date: 20100401
  Transmission Date: 20101027
  Serious: Yes (Other)
  Sender: FDA-Public Use
  Company Number: PHHY2010US20616

PATIENT
  Age: 38 Year
  Sex: Male
  Weight: 82.993 kg

DRUGS (1)
  1. GLEEVEC [Suspect]
     Indication: CHRONIC MYELOID LEUKAEMIA
     Dosage: 400 MG, QD
     Dates: start: 20090401

REACTIONS (3)
  - BONE MARROW DISORDER [None]
  - CHEST DISCOMFORT [None]
  - PAIN IN EXTREMITY [None]
